FAERS Safety Report 5930650-2 (Version None)
Quarter: 2008Q4

REPORT INFORMATION
  Report Type: 
  Country: None (occurrence: None)
  Receive Date: 20081022
  Receipt Date: 20081010
  Transmission Date: 20090506
  Serious: Yes (Other)
  Sender: FDA-Public Use
  Company Number: 2008008754

PATIENT
  Age: 14 Year
  Sex: Female
  Weight: 40.8 kg

DRUGS (2)
  1. BENADRYL [Suspect]
     Dosage: 1 STRIP, ONCE, ORAL
     Route: 048
     Dates: start: 20080201, end: 20080201
  2. NUTRITIONAL SUPPLEMENT (GENERAL NUTRIENTS) [Concomitant]

REACTIONS (5)
  - DYSPHAGIA [None]
  - OEDEMA MOUTH [None]
  - PHARYNGEAL HYPOAESTHESIA [None]
  - PHARYNGEAL OEDEMA [None]
  - TONGUE OEDEMA [None]
